FAERS Safety Report 9181783 (Version 1)
Quarter: 2013Q1

REPORT INFORMATION
  Report Type: Spontaneous
  Country: US (occurrence: None)
  Receive Date: 20130321
  Receipt Date: 20130321
  Transmission Date: 20140127
  Serious: Yes (Hospitalization)
  Sender: FDA-Public Use
  Company Number: None

PATIENT
  Sex: Male
  Weight: 75.5 kg

DRUGS (2)
  1. CARBOPLATIN [Suspect]
  2. PACLITAXEL (TAXOL) [Suspect]

REACTIONS (9)
  - Hemiparesis [None]
  - VIIth nerve paralysis [None]
  - Dysarthria [None]
  - Disorientation [None]
  - Tachycardia [None]
  - Blood pressure systolic increased [None]
  - Drug dose omission [None]
  - Atrial fibrillation [None]
  - Cerebral artery embolism [None]
